FAERS Safety Report 8576518 (Version 3)
Quarter: 2013Q3

REPORT INFORMATION
  Report Type: Spontaneous
  Country: US (occurrence: US)
  Receive Date: 20120523
  Receipt Date: 20130827
  Transmission Date: 20140515
  Serious: Yes (Hospitalization, Other)
  Sender: FDA-Public Use
  Company Number: US-US-EMD SERONO, INC.-7133722

PATIENT
  Sex: Male
  Weight: 38 kg

DRUGS (8)
  1. SAIZEN [(SOMATROPIN (RDNA ORIGIN) FOR INJECTION)] [Suspect]
     Indication: SMALL FOR DATES BABY
     Dates: start: 20080531
  2. LEVOTHYROXINE [Concomitant]
     Indication: PRODUCT USED FOR UNKNOWN INDICATION
  3. CITALOPRAM [Concomitant]
     Indication: PRODUCT USED FOR UNKNOWN INDICATION
  4. RISPERIDONE [Concomitant]
     Indication: PRODUCT USED FOR UNKNOWN INDICATION
  5. LORAZEPAM [Concomitant]
     Indication: PRODUCT USED FOR UNKNOWN INDICATION
  6. ALOES                              /00257301/ [Concomitant]
     Indication: PRODUCT USED FOR UNKNOWN INDICATION
  7. VITAMIN D3 [Concomitant]
     Indication: PRODUCT USED FOR UNKNOWN INDICATION
  8. OMEGA                              /00694402/ [Concomitant]
     Indication: PRODUCT USED FOR UNKNOWN INDICATION

REACTIONS (16)
  - Paediatric autoimmune neuropsychiatric disorders associated with streptococcal infection [Unknown]
  - Obsessive-compulsive disorder [Recovering/Resolving]
  - Tourette^s disorder [Unknown]
  - Hallucination [Unknown]
  - Oropharyngeal pain [Unknown]
  - Constipation [Unknown]
  - Fatigue [Unknown]
  - Malaise [Unknown]
  - Weight decreased [Unknown]
  - Decreased appetite [Unknown]
  - Syncope [Unknown]
  - Acne [Unknown]
  - Anxiety [Unknown]
  - Flat affect [Unknown]
  - Anaemia [Unknown]
  - Myalgia [Unknown]
